FAERS Safety Report 12518936 (Version 1)
Quarter: 2016Q2

REPORT INFORMATION
  Report Type: Spontaneous
  Country: JP (occurrence: JP)
  Receive Date: 20160630
  Receipt Date: 20160630
  Transmission Date: 20160815
  Serious: Yes (Death)
  Sender: FDA-Public Use
  Company Number: PHHY2016JP087759

PATIENT
  Age: 59 Year
  Sex: Male

DRUGS (4)
  1. IRINOTECAN [Suspect]
     Active Substance: IRINOTECAN
     Indication: SIGNET-RING CELL CARCINOMA
     Dosage: 90 MG/DOSE
     Route: 065
  2. PACLITAXEL. [Suspect]
     Active Substance: PACLITAXEL
     Indication: SIGNET-RING CELL CARCINOMA
     Dosage: 160 MG, UNK
     Route: 042
  3. CDDP [Suspect]
     Active Substance: CISPLATIN
     Indication: SIGNET-RING CELL CARCINOMA
     Dosage: 45 MG, UNK
     Route: 065
  4. PACLITAXEL. [Suspect]
     Active Substance: PACLITAXEL
     Dosage: 190 MG, UNK
     Route: 065

REACTIONS (4)
  - Cachexia [Fatal]
  - Pigmentation disorder [Unknown]
  - Alopecia [Unknown]
  - Rash [Unknown]
